FAERS Safety Report 23945497 (Version 1)
Quarter: 2024Q2

REPORT INFORMATION
  Report Type: Spontaneous
  Country: DE (occurrence: DE)
  Receive Date: 20240606
  Receipt Date: 20240606
  Transmission Date: 20240716
  Serious: Yes (Other)
  Sender: FDA-Public Use
  Company Number: None

PATIENT
  Age: 64 Year
  Sex: Male
  Weight: 100 kg

DRUGS (1)
  1. METFORMIN [Suspect]
     Active Substance: METFORMIN HYDROCHLORIDE
     Indication: Type 2 diabetes mellitus
     Dosage: 1000MG   1-1-1
     Route: 048
     Dates: end: 20240510

REACTIONS (6)
  - Lactic acidosis [Recovering/Resolving]
  - Peripheral circulatory failure [Recovering/Resolving]
  - Shock symptom [Recovering/Resolving]
  - Respiratory failure [Recovering/Resolving]
  - Hypotension [Recovering/Resolving]
  - Toxicity to various agents [Recovering/Resolving]

NARRATIVE: CASE EVENT DATE: 20240510
